FAERS Safety Report 22163495 (Version 1)
Quarter: 2023Q2

REPORT INFORMATION
  Report Type: Spontaneous
  Country: US (occurrence: US)
  Receive Date: 20230401
  Receipt Date: 20230401
  Transmission Date: 20230722
  Serious: No
  Sender: FDA-Public Use
  Company Number: US-009507513-2303USA009929

PATIENT
  Age: 65 Year
  Sex: Male

DRUGS (7)
  1. CUBICIN [Suspect]
     Active Substance: DAPTOMYCIN
     Indication: Inflammatory marker increased
     Dosage: UNK
     Route: 042
  2. CUBICIN [Suspect]
     Active Substance: DAPTOMYCIN
     Indication: Leukocytosis
  3. CUBICIN [Suspect]
     Active Substance: DAPTOMYCIN
     Indication: Paraspinal abscess
  4. CUBICIN [Suspect]
     Active Substance: DAPTOMYCIN
     Indication: Retroperitoneal abscess
  5. CUBICIN [Suspect]
     Active Substance: DAPTOMYCIN
     Indication: Vascular graft infection
  6. INVANZ [Suspect]
     Active Substance: ERTAPENEM SODIUM
     Indication: Paraspinal abscess
     Dosage: UNK
     Route: 042
  7. INVANZ [Suspect]
     Active Substance: ERTAPENEM SODIUM
     Indication: Retroperitoneal abscess

REACTIONS (1)
  - Product use in unapproved indication [Unknown]
